FAERS Safety Report 13407628 (Version 3)
Quarter: 2017Q2

REPORT INFORMATION
  Report Type: Spontaneous
  Country: EG (occurrence: EG)
  Receive Date: 20170406
  Receipt Date: 20170509
  Transmission Date: 20170830
  Serious: Yes (Other)
  Sender: FDA-Public Use
  Company Number: EG-ASTRAZENECA-2017SE33695

PATIENT
  Age: 36 Year
  Sex: Female
  Weight: 75 kg

DRUGS (12)
  1. ZOLADEX [Suspect]
     Active Substance: GOSERELIN ACETATE
     Indication: METASTASES TO BONE
     Dosage: 3.6MG UNKNOWN
     Route: 058
  2. ZOLADEX [Suspect]
     Active Substance: GOSERELIN ACETATE
     Indication: METASTASES TO OVARY
     Dosage: 3.6MG UNKNOWN
     Route: 058
     Dates: start: 20170114, end: 20170204
  3. ZOLADEX [Suspect]
     Active Substance: GOSERELIN ACETATE
     Indication: NEOPLASM MALIGNANT
     Dosage: 3.6MG UNKNOWN
     Route: 058
  4. HERCEPTIN [Suspect]
     Active Substance: TRASTUZUMAB
     Indication: NEOPLASM MALIGNANT
     Dosage: 540.0MG UNKNOWN
     Route: 041
  5. TAMOFEN [Suspect]
     Active Substance: TAMOXIFEN CITRATE
     Indication: NEOPLASM MALIGNANT
     Dosage: 20.0MG UNKNOWN
     Route: 048
     Dates: start: 20170114, end: 20170204
  6. DEXAMETHASONE. [Concomitant]
     Active Substance: DEXAMETHASONE
  7. ZOLADEX [Suspect]
     Active Substance: GOSERELIN ACETATE
     Indication: METASTASES TO OVARY
     Dosage: 3.6MG UNKNOWN
     Route: 058
  8. HERCEPTIN [Suspect]
     Active Substance: TRASTUZUMAB
     Indication: NEOPLASM MALIGNANT
     Dosage: 540.0MG UNKNOWN
     Route: 041
     Dates: start: 20170114, end: 20170204
  9. MOTILIUM [Concomitant]
     Active Substance: DOMPERIDONE
  10. ZOLADEX [Suspect]
     Active Substance: GOSERELIN ACETATE
     Indication: NEOPLASM MALIGNANT
     Dosage: 3.6MG UNKNOWN
     Route: 058
     Dates: start: 20170114, end: 20170204
  11. ZOLADEX [Suspect]
     Active Substance: GOSERELIN ACETATE
     Indication: METASTASES TO BONE
     Dosage: 3.6MG UNKNOWN
     Route: 058
     Dates: start: 20170114, end: 20170204
  12. TAMOFEN [Suspect]
     Active Substance: TAMOXIFEN CITRATE
     Indication: NEOPLASM MALIGNANT
     Dosage: 20.0MG UNKNOWN
     Route: 048

REACTIONS (2)
  - Glucose tolerance impaired [Not Recovered/Not Resolved]
  - Neuropathy peripheral [Unknown]

NARRATIVE: CASE EVENT DATE: 20170204
